FAERS Safety Report 6035339-X (Version None)
Quarter: 2009Q1

REPORT INFORMATION
  Report Type: 
  Country: None (occurrence: None)
  Receive Date: 20090113
  Receipt Date: 20090105
  Transmission Date: 20090719
  Serious: Yes (Hospitalization)
  Sender: FDA-Public Use
  Company Number: US-RB-007817-09

PATIENT
  Sex: Female

DRUGS (1)
  1. MUCINEX [Suspect]
     Route: 048
     Dates: start: 20081219

REACTIONS (1)
  - DYSPNOEA [None]
